FAERS Safety Report 4965798-2 (Version None)
Quarter: 2006Q2

REPORT INFORMATION
  Report Type: 
  Country: None (occurrence: None)
  Receive Date: 20060406
  Receipt Date: 20060406
  Transmission Date: 20061013
  Serious: No
  Sender: FDA-Public Use
  Company Number: None

PATIENT
  Age: 98 Year
  Sex: Female

DRUGS (1)
  1. AZITHROMYCIN DIHYDRATE [Suspect]
     Indication: PNEUMONIA
     Dosage: 250MG IV DAILY
     Route: 042

REACTIONS (1)
  - HYPOPROTHROMBINAEMIA [None]
